FAERS Safety Report 17153317 (Version 1)
Quarter: 2019Q4

REPORT INFORMATION
  Report Type: Spontaneous
  Country: FR (occurrence: FR)
  Receive Date: 20191213
  Receipt Date: 20191213
  Transmission Date: 20200122
  Serious: Yes (Hospitalization, Other)
  Sender: FDA-Public Use
  Company Number: FR-CELGENEUS-FRA-20191203069

PATIENT
  Age: 81 Year
  Sex: Female

DRUGS (3)
  1. IMNOVID [Suspect]
     Active Substance: POMALIDOMIDE
     Dosage: 16 MILLIGRAM
     Route: 048
     Dates: start: 20191204, end: 20191204
  2. IMNOVID [Suspect]
     Active Substance: POMALIDOMIDE
     Indication: PLASMA CELL MYELOMA
     Dosage: 4 MILLIGRAM
     Route: 048
     Dates: start: 201810
  3. IMNOVID [Suspect]
     Active Substance: POMALIDOMIDE
     Dosage: 4 MILLIGRAM
     Route: 048
     Dates: start: 20191206

REACTIONS (6)
  - General physical health deterioration [Unknown]
  - Creatinine renal clearance decreased [Unknown]
  - Shift work disorder [Unknown]
  - Mental disorder [Unknown]
  - Overdose [Unknown]
  - Anaemia [Unknown]

NARRATIVE: CASE EVENT DATE: 201910
